FAERS Safety Report 16648964 (Version 14)
Quarter: 2020Q2

REPORT INFORMATION
  Report Type: Report from Study
  Country: KR (occurrence: KR)
  Receive Date: 20190730
  Receipt Date: 20200415
  Transmission Date: 20200713
  Serious: Yes (Death, Hospitalization)
  Sender: FDA-Public Use
  Company Number: KR-EISAI MEDICAL RESEARCH-EC-2019-059009

PATIENT
  Age: 60 Year
  Sex: Female

DRUGS (12)
  1. HYSONE [Concomitant]
     Dates: start: 20190523, end: 20190725
  2. MEDILAC-DS [Concomitant]
     Dates: start: 20190524
  3. IRCODON [Concomitant]
     Active Substance: OXYCODONE HYDROCHLORIDE
     Dates: start: 201904, end: 20190627
  4. POLYBUTINE [Concomitant]
     Dates: start: 20190524
  5. URSA TABLETS [Concomitant]
     Dates: start: 20190529
  6. ALDACTONE [Concomitant]
     Active Substance: SPIRONOLACTONE
     Dates: start: 20190620, end: 20190703
  7. FREAMINE III NOS [Concomitant]
     Active Substance: AMINO ACIDS
     Dates: start: 20190704, end: 20190704
  8. LENVATINIB [Suspect]
     Active Substance: LENVATINIB
     Indication: TRIPLE NEGATIVE BREAST CANCER
     Route: 048
     Dates: start: 20190621, end: 20190703
  9. PEMBROLIZUMAB. [Suspect]
     Active Substance: PEMBROLIZUMAB
     Indication: TRIPLE NEGATIVE BREAST CANCER
     Route: 041
     Dates: start: 20190621, end: 20190621
  10. HYSONE [Concomitant]
     Dates: start: 20190523
  11. MYPOL [Concomitant]
     Dates: start: 201904, end: 20190703
  12. LASIX [Concomitant]
     Active Substance: FUROSEMIDE
     Dates: start: 20190620, end: 20190703

REACTIONS (2)
  - Pulmonary embolism [Recovered/Resolved with Sequelae]
  - Pneumothorax [Recovered/Resolved]

NARRATIVE: CASE EVENT DATE: 20190704
